FAERS Safety Report 20622556 (Version 2)
Quarter: 2022Q2

REPORT INFORMATION
  Report Type: Report from Study
  Country: US (occurrence: US)
  Receive Date: 20220322
  Receipt Date: 20220404
  Transmission Date: 20220721
  Serious: No
  Sender: FDA-Public Use
  Company Number: US-NOVARTISTESTPH-NVSC2022US063531

PATIENT
  Sex: Male

DRUGS (1)
  1. ENTRESTO [Suspect]
     Active Substance: SACUBITRIL\VALSARTAN
     Indication: Product used for unknown indication
     Dosage: STARTED ENTRESTO APPROX JAN 2021
     Route: 065

REACTIONS (3)
  - Dizziness postural [Unknown]
  - Malaise [Unknown]
  - Nasopharyngitis [Unknown]
